FAERS Safety Report 8865838 (Version 1)
Quarter: 2012Q4

REPORT INFORMATION
  Report Type: 
  Country: US (occurrence: US)
  Receive Date: 20121024
  Receipt Date: 20121024
  Transmission Date: 20130627
  Serious: No
  Sender: FDA-Public Use
  Company Number: US-AMGEN-USASP2011066812

PATIENT
  Age: 41 Year
  Sex: Male

DRUGS (2)
  1. ENBREL [Suspect]
     Indication: PSORIASIS
     Dosage: 50 mg, qwk
     Dates: start: 20060421
  2. ENBREL [Suspect]
     Dosage: 50 mg, qwk
     Dates: start: 20060301

REACTIONS (2)
  - Diabetes mellitus [Unknown]
  - Dizziness [Recovered/Resolved]
